FAERS Safety Report 5762012-5 (Version None)
Quarter: 2008Q2

REPORT INFORMATION
  Report Type: 
  Country: None (occurrence: None)
  Receive Date: 20080603
  Receipt Date: 20080530
  Transmission Date: 20081010
  Serious: Yes (Hospitalization)
  Sender: FDA-Public Use
  Company Number: 2008SP009585

PATIENT
  Age: 34 Year
  Sex: Male

DRUGS (3)
  1. DIPROSALIC (BETAMETHASONE DIPROPIONATE/SALICYLIC ACID) (BETAMETHASONE [Suspect]
     Indication: SEBORRHOEIC DERMATITIS
     Dosage: 1 DF;QPM; CUT
     Route: 003
     Dates: start: 20060301
  2. DIPROSALIC (BETAMETHASONE DIPROPIONATE/SALICYLIC ACID) (BETAMETHASONE [Suspect]
     Indication: SEBORRHOEIC DERMATITIS
     Dosage: 1 DF;QPM; CUT
     Route: 003
     Dates: start: 20070701
  3. DIPROSALIC (BETAMETHASONE DIPROPIONATE/SALICYLIC ACID) (BETAMETHASONE [Suspect]
     Indication: SEBORRHOEIC DERMATITIS
     Dosage: 1 DF;QPM; CUT
     Route: 003
     Dates: start: 20080301

REACTIONS (1)
  - COLITIS ULCERATIVE [None]
